FAERS Safety Report 6297586-1 (Version None)
Quarter: 2009Q3

REPORT INFORMATION
  Report Type: 
  Country: None (occurrence: None)
  Receive Date: 20090805
  Receipt Date: 20081027
  Transmission Date: 20100115
  Serious: Yes (Other)
  Sender: FDA-Public Use
  Company Number: PHHY2008AU34020

PATIENT
  Sex: Female

DRUGS (1)
  1. GLEEVEC [Suspect]
     Dosage: 200 MG
     Route: 048

REACTIONS (3)
  - CONDITION AGGRAVATED [None]
  - LYMPHOEDEMA [None]
  - WEIGHT INCREASED [None]
